FAERS Safety Report 4978106-8 (Version None)
Quarter: 2006Q2

REPORT INFORMATION
  Report Type: 
  Country: None (occurrence: None)
  Receive Date: 20060420
  Receipt Date: 20060314
  Transmission Date: 20061013
  Serious: Yes (Death, Life-Threatening)
  Sender: FDA-Public Use
  Company Number: 2006AP01295

PATIENT
  Age: 25030 Day
  Sex: Male
  Weight: 67 kg

DRUGS (8)
  1. ARIMIDEX [Suspect]
     Indication: BREAST CANCER
     Route: 048
     Dates: start: 20050901, end: 20060315
  2. DEPAKENE [Concomitant]
     Route: 048
     Dates: start: 20050920, end: 20060301
  3. ALEVIATIN [Concomitant]
     Route: 048
     Dates: start: 20060201, end: 20060301
  4. CYANOCOBALAMIN [Concomitant]
     Route: 048
     Dates: start: 20050101, end: 20060201
  5. JUVELA NICOTINATE [Concomitant]
     Route: 048
     Dates: start: 20050101, end: 20060201
  6. MAGNESIUM OXIDE [Concomitant]
     Route: 048
     Dates: start: 20050101, end: 20060301
  7. DESMOPRESSIN [Concomitant]
     Route: 045
     Dates: start: 20050920, end: 20060301
  8. PROTECADIN [Concomitant]
     Route: 048
     Dates: start: 20060201, end: 20060301

REACTIONS (10)
  - BRAIN CONTUSION [None]
  - FALL [None]
  - INFECTION [None]
  - INTERSTITIAL LUNG DISEASE [None]
  - PNEUMOCYSTIS JIROVECI PNEUMONIA [None]
  - PNEUMONIA CYTOMEGALOVIRAL [None]
  - RESPIRATORY ARREST [None]
  - RESPIRATORY FAILURE [None]
  - SUBDURAL HAEMORRHAGE [None]
  - THERAPY NON-RESPONDER [None]
